FAERS Safety Report 10967037 (Version 1)
Quarter: 2015Q1

REPORT INFORMATION
  Report Type: Spontaneous
  Country: US (occurrence: US)
  Receive Date: 20150330
  Receipt Date: 20150330
  Transmission Date: 20150721
  Serious: No
  Sender: FDA-Public Use
  Company Number: US-TEVA-550278USA

PATIENT
  Age: 76 Year
  Sex: Female
  Weight: 84.6 kg

DRUGS (2)
  1. RITUXAN [Suspect]
     Active Substance: RITUXIMAB
     Indication: CHRONIC LYMPHOCYTIC LEUKAEMIA
     Dosage: 375 MG/M2, D 1 ,2 EVERY 28 DAYS
     Route: 042
  2. BENDAMUSTINE [Suspect]
     Active Substance: BENDAMUSTINE
     Indication: CHRONIC LYMPHOCYTIC LEUKAEMIA
     Dosage: 90 MG/M2, D 1 ,2 EVERY 28 DAYS
     Route: 042
     Dates: start: 20120731, end: 20120926

REACTIONS (2)
  - Papule [Unknown]
  - Actinic keratosis [Unknown]

NARRATIVE: CASE EVENT DATE: 201401
